FAERS Safety Report 24243564 (Version 4)
Quarter: 2024Q4

REPORT INFORMATION
  Report Type: Report from Study
  Country: GB (occurrence: GB)
  Receive Date: 20240823
  Receipt Date: 20241101
  Transmission Date: 20250114
  Serious: Yes (Hospitalization)
  Sender: TAKEDA
  Company Number: GB-TAKEDA-2024TUS073866

PATIENT
  Age: 59 Year
  Sex: Female

DRUGS (3)
  1. HUMAN IMMUNOGLOBULIN G [Suspect]
     Active Substance: HUMAN IMMUNOGLOBULIN G
     Indication: Immunodeficiency
     Dosage: UNK
     Route: 058
     Dates: start: 202406
  2. HUMAN IMMUNOGLOBULIN G [Suspect]
     Active Substance: HUMAN IMMUNOGLOBULIN G
     Dosage: UNK
     Route: 058
  3. HUMAN IMMUNOGLOBULIN G [Suspect]
     Active Substance: HUMAN IMMUNOGLOBULIN G
     Dosage: UNK
     Route: 058

REACTIONS (8)
  - Upper limb fracture [Unknown]
  - Fall [Unknown]
  - Product administration error [Unknown]
  - COVID-19 [Unknown]
  - Vasculitis [Unknown]
  - Feeling abnormal [Unknown]
  - Influenza [Unknown]
  - Somnolence [Unknown]

NARRATIVE: CASE EVENT DATE: 20240814
